FAERS Safety Report 6655487-0 (Version None)
Quarter: 2010Q1

REPORT INFORMATION
  Report Type: 
  Country: None (occurrence: None)
  Receive Date: 20100329
  Receipt Date: 20100322
  Transmission Date: 20100710
  Serious: Yes (Hospitalization, Other)
  Sender: FDA-Public Use
  Company Number: AU-ROXANE LABORATORIES, INC.-2010-RO-00309RO

PATIENT
  Age: 60 Year
  Sex: Female

DRUGS (18)
  1. CLARITHROMYCIN [Suspect]
     Indication: LOWER RESPIRATORY TRACT INFECTION
     Dosage: 500 MG
  2. LITHIUM CARBONATE [Suspect]
     Indication: BIPOLAR DISORDER
  3. LITHIUM CARBONATE [Suspect]
     Dosage: 500 MG
  4. DIAZEPAM [Suspect]
     Indication: MENTAL DISORDER
     Dosage: 40 MG
     Route: 048
  5. DIAZEPAM [Suspect]
     Dosage: 2 MG
     Route: 048
  6. DIAZEPAM [Suspect]
     Route: 048
  7. DIGOXIN [Suspect]
     Indication: CARDIAC DISORDER
     Dosage: 62.5 MCG
  8. PERICYAZINE [Suspect]
     Indication: BIPOLAR DISORDER
     Dosage: 10 MG
  9. QUETIAPINE [Suspect]
     Indication: MENTAL DISORDER
     Dosage: 125 MG
  10. QUETIAPINE [Suspect]
     Dosage: 25 MG
  11. ESCITALOPRAM [Suspect]
     Indication: MENTAL DISORDER
     Dosage: 20 MG
  12. ASPIRIN [Suspect]
     Indication: CARDIAC DISORDER
     Dosage: 100 MG
  13. PERINDOPRIL [Suspect]
     Indication: CARDIAC DISORDER
     Dosage: 10 MG
  14. SIMVASTATIN [Suspect]
     Indication: CARDIAC DISORDER
     Dosage: 80 MG
  15. BROMOCRIPTINE [Concomitant]
     Indication: NEUROLEPTIC MALIGNANT SYNDROME
     Route: 048
  16. BROMOCRIPTINE [Concomitant]
     Route: 048
  17. BROMOCRIPTINE [Concomitant]
     Route: 048
  18. BROMOCRIPTINE [Concomitant]
     Route: 048

REACTIONS (10)
  - ANTIPSYCHOTIC DRUG LEVEL BELOW THERAPEUTIC [None]
  - BLOOD CREATINE PHOSPHOKINASE INCREASED [None]
  - CONFUSIONAL STATE [None]
  - DELIRIUM [None]
  - HYPERTONIA [None]
  - LOWER RESPIRATORY TRACT INFECTION [None]
  - MYALGIA [None]
  - NEUROLEPTIC MALIGNANT SYNDROME [None]
  - PYREXIA [None]
  - TACHYCARDIA [None]
